FAERS Safety Report 9473930 (Version 2)
Quarter: 2013Q3

REPORT INFORMATION
  Report Type: Spontaneous
  Country: US (occurrence: US)
  Receive Date: 20130823
  Receipt Date: 20130823
  Transmission Date: 20140515
  Serious: No
  Sender: FDA-Public Use
  Company Number: US-BRISTOL-MYERS SQUIBB COMPANY-17148966

PATIENT
  Age: 75 Year
  Sex: Female

DRUGS (5)
  1. SPRYCEL (CML) TABS 100 MG [Suspect]
     Indication: CHRONIC MYELOID LEUKAEMIA
     Route: 048
     Dates: start: 20121113, end: 20130103
  2. AMLODIPINE [Concomitant]
     Dosage: AMLODIPINE 10 MG
  3. METOPROLOL [Concomitant]
  4. VITAMIN D [Concomitant]
  5. PRAVASTATIN SODIUM [Concomitant]
     Dosage: FORMULATION-PRAVASTATIN 20 MG

REACTIONS (8)
  - Headache [Recovered/Resolved]
  - Scratch [Recovered/Resolved]
  - Malaise [Recovered/Resolved]
  - Diarrhoea [Recovered/Resolved]
  - Hypersomnia [Recovered/Resolved]
  - Weight decreased [Recovered/Resolved]
  - Decreased appetite [Recovered/Resolved]
  - Dysarthria [Recovered/Resolved]
